FAERS Safety Report 4515524-6 (Version None)
Quarter: 2004Q4

REPORT INFORMATION
  Report Type: 
  Country: None (occurrence: None)
  Receive Date: 20041126
  Receipt Date: 20040426
  Transmission Date: 20050328
  Serious: Yes (Hospitalization)
  Sender: FDA-Public Use
  Company Number: 196776

PATIENT
  Age: 62 Year
  Sex: Female
  Weight: 79.3795 kg

DRUGS (4)
  1. AVONEX [Suspect]
     Indication: MULTIPLE SCLEROSIS
     Dosage: 30 UG;WE; IM
     Route: 030
     Dates: start: 19990101, end: 20000101
  2. AVONEX [Suspect]
     Indication: MULTIPLE SCLEROSIS
     Dosage: 30 UG;WE; IM
     Route: 030
     Dates: start: 20030101, end: 20031001
  3. AVONEX [Suspect]
     Indication: MULTIPLE SCLEROSIS
     Dosage: 30 UG;WE; IM
     Route: 030
     Dates: start: 20031001
  4. NEXIUM [Concomitant]

REACTIONS (10)
  - CHOLECYSTITIS [None]
  - CHOLECYSTITIS INFECTIVE [None]
  - CHOLELITHIASIS [None]
  - CONDITION AGGRAVATED [None]
  - GALLBLADDER PERFORATION [None]
  - GASTROOESOPHAGEAL REFLUX DISEASE [None]
  - MULTIPLE SCLEROSIS [None]
  - OEDEMA PERIPHERAL [None]
  - PROCEDURAL COMPLICATION [None]
  - SEPSIS [None]
